FAERS Safety Report 12642802 (Version 1)
Quarter: 2016Q3

REPORT INFORMATION
  Report Type: Spontaneous
  Country: US (occurrence: US)
  Receive Date: 20160811
  Receipt Date: 20160811
  Transmission Date: 20161109
  Serious: No
  Sender: FDA-Public Use
  Company Number: US-JNJFOC-20160722317

PATIENT
  Age: 23 Year
  Sex: Female
  Weight: 55.79 kg

DRUGS (6)
  1. CITALOPRAM [Concomitant]
     Active Substance: CITALOPRAM HYDROBROMIDE
     Indication: ANXIETY
     Dosage: 5 YEARS
     Route: 065
  2. PROBIOTICS NOS [Concomitant]
     Active Substance: PROBIOTICS NOS
     Indication: GASTRIC DISORDER
     Dosage: 3 YEARS
     Route: 065
  3. MAGNESIUM W/VITAMIN B6 [Concomitant]
     Indication: NUTRITIONAL SUPPLEMENTATION
     Dosage: 2 YEARS
     Route: 065
  4. PEPCID AC [Suspect]
     Active Substance: FAMOTIDINE
     Route: 048
  5. PEPCID AC [Suspect]
     Active Substance: FAMOTIDINE
     Indication: GASTROOESOPHAGEAL REFLUX DISEASE
     Route: 048
  6. PRILOSEC [Concomitant]
     Active Substance: OMEPRAZOLE MAGNESIUM
     Indication: GASTROOESOPHAGEAL REFLUX DISEASE
     Dosage: 2 YEARS
     Route: 065

REACTIONS (4)
  - Wound haemorrhage [Not Recovered/Not Resolved]
  - Drug prescribing error [Unknown]
  - Product container issue [Unknown]
  - Contraindicated product administered [Unknown]

NARRATIVE: CASE EVENT DATE: 20160725
